FAERS Safety Report 10587550 (Version 1)
Quarter: 2014Q4

REPORT INFORMATION
  Report Type: Spontaneous
  Country: US (occurrence: US)
  Receive Date: 20141117
  Receipt Date: 20141117
  Transmission Date: 20150529
  Serious: No
  Sender: FDA-Public Use
  Company Number: US-PFIZER INC-2014312530

PATIENT
  Age: 72 Year
  Sex: Female
  Weight: 83 kg

DRUGS (1)
  1. MOTRIN IB [Suspect]
     Active Substance: IBUPROFEN
     Dosage: UNK
     Dates: start: 20141007

REACTIONS (3)
  - Product package associated injury [Recovering/Resolving]
  - Pain in extremity [Recovering/Resolving]
  - Product packaging issue [Recovering/Resolving]

NARRATIVE: CASE EVENT DATE: 20141007
